FAERS Safety Report 15404998 (Version 1)
Quarter: 2018Q3

REPORT INFORMATION
  Report Type: Spontaneous
  Country: US (occurrence: US)
  Receive Date: 20180920
  Receipt Date: 20180920
  Transmission Date: 20181010
  Serious: No
  Sender: FDA-Public Use
  Company Number: US-AUROBINDO-AUR-APL-2018-032470

PATIENT
  Sex: Female
  Weight: 46.2 kg

DRUGS (1)
  1. ALENDRONATE SODIUM TABLETS USP 70MG [Suspect]
     Active Substance: ALENDRONATE SODIUM
     Indication: OSTEOPOROSIS
     Dosage: TAKE ONE TABLET ORALLY WEEKLY
     Route: 048
     Dates: start: 20180320

REACTIONS (4)
  - Arthralgia [Unknown]
  - Weight increased [Unknown]
  - Abdominal pain upper [Unknown]
  - Abdominal distension [Unknown]
